FAERS Safety Report 5383961-6 (Version None)
Quarter: 2007Q3

REPORT INFORMATION
  Report Type: 
  Country: None (occurrence: None)
  Receive Date: 20070711
  Receipt Date: 20070629
  Transmission Date: 20080115
  Serious: Yes (Other)
  Sender: FDA-Public Use
  Company Number: DE-ROCHE-499640

PATIENT
  Age: 83 Year
  Sex: Male
  Weight: 86 kg

DRUGS (5)
  1. XELODA [Suspect]
     Dosage: DOSE TAKEN FOR 2 CYCLES
     Route: 048
     Dates: start: 20061127
  2. XELODA [Suspect]
     Dosage: 1500 MG IN MORNING; 1000 MG IN EVENING(4 CYCLES)
     Route: 048
     Dates: start: 20070117
  3. CIPROFLOXACIN [Suspect]
     Indication: BRONCHITIS
     Route: 048
     Dates: start: 20070204, end: 20070211
  4. MIRTAZAPINE [Concomitant]
     Indication: DEPRESSION
     Route: 048
  5. MOLSIDOMIN [Concomitant]
     Route: 048

REACTIONS (2)
  - BRONCHITIS [None]
  - RHABDOMYOLYSIS [None]
